FAERS Safety Report 10921137 (Version 1)
Quarter: 2015Q1

REPORT INFORMATION
  Report Type: Spontaneous
  Country: US (occurrence: None)
  Receive Date: 20150313
  Receipt Date: 20150313
  Transmission Date: 20150721
  Serious: Yes (Life-Threatening, Hospitalization)
  Sender: FDA-Public Use
  Company Number: None

PATIENT
  Age: 81 Year
  Sex: Female
  Weight: 63.5 kg

DRUGS (6)
  1. PANTOPRAZOLE [Concomitant]
     Active Substance: PANTOPRAZOLE SODIUM
  2. SAVAYSA [Suspect]
     Active Substance: EDOXABAN TOSYLATE
     Indication: CARDIAC VALVE DISEASE
     Dosage: 1 PILL
     Route: 048
     Dates: start: 20150224, end: 20150302
  3. VALSARTAN. [Concomitant]
     Active Substance: VALSARTAN
  4. DOCUSATE [Concomitant]
     Active Substance: DOCUSATE
  5. ASPIRIN. [Concomitant]
     Active Substance: ASPIRIN
  6. METOPROLO [Concomitant]

REACTIONS (3)
  - Gastrointestinal haemorrhage [None]
  - Rash [None]
  - Haemoglobin decreased [None]

NARRATIVE: CASE EVENT DATE: 20150302
